FAERS Safety Report 6274172-0 (Version None)
Quarter: 2009Q3

REPORT INFORMATION
  Report Type: 
  Country: None (occurrence: None)
  Receive Date: 20090720
  Receipt Date: 20090708
  Transmission Date: 20100115
  Serious: Yes (Hospitalization)
  Sender: FDA-Public Use
  Company Number: GB-PFIZER INC-2007097327

PATIENT
  Age: 42 Year

DRUGS (7)
  1. SUNITINIB MALATE [Suspect]
     Indication: GASTROINTESTINAL STROMAL TUMOUR
     Dosage: 37.5 MG, CYCLIC: DAILY (4 WEEKS ON, 2 WEEKS OFF)
     Route: 048
     Dates: start: 20070824
  2. LANSOPRAZOLE [Concomitant]
     Route: 048
     Dates: start: 20070315
  3. AMLODIPINE [Concomitant]
     Route: 048
     Dates: start: 20060222
  4. PARACETAMOL [Concomitant]
     Route: 048
     Dates: start: 20060125
  5. ORAMORPH SR [Concomitant]
     Route: 048
  6. LEVOTHYROXINE SODIUM [Concomitant]
     Route: 048
     Dates: start: 20071029
  7. VENTOLIN DISKUS [Concomitant]
     Route: 055
     Dates: start: 20000101

REACTIONS (1)
  - ASCITES [None]
